FAERS Safety Report 4613020-9 (Version None)
Quarter: 2005Q1

REPORT INFORMATION
  Report Type: 
  Country: None (occurrence: None)
  Receive Date: 20050318
  Receipt Date: 20041014
  Transmission Date: 20050727
  Serious: Yes (Hospitalization, Other)
  Sender: FDA-Public Use
  Company Number: TW-MERCK-0410TWN00018

PATIENT
  Age: 75 Year
  Sex: Male

DRUGS (6)
  1. VIOXX [Suspect]
     Indication: BACK PAIN
     Route: 048
     Dates: start: 20040628
  2. CELECOXIB [Concomitant]
     Indication: INFLAMMATION
     Route: 048
     Dates: start: 20040802
  3. CELECOXIB [Concomitant]
     Indication: ANALGESIC EFFECT
     Route: 048
     Dates: start: 20040802
  4. VALPROATE SODIUM [Concomitant]
     Indication: AFFECTIVE DISORDER
     Route: 048
     Dates: start: 20040830
  5. VALPROATE SODIUM [Concomitant]
     Indication: EPILEPSY
     Route: 048
     Dates: start: 20040830
  6. ESOMEPRAZOLE MAGNESIUM [Concomitant]
     Indication: PEPTIC ULCER
     Route: 048
     Dates: start: 20040904

REACTIONS (5)
  - ABDOMINAL PAIN UPPER [None]
  - BLADDER CANCER [None]
  - EPILEPSY [None]
  - GASTRIC ULCER [None]
  - HEADACHE [None]
